FAERS Safety Report 6296968-1 (Version None)
Quarter: 2009Q3

REPORT INFORMATION
  Report Type: 
  Country: None (occurrence: None)
  Receive Date: 20090804
  Receipt Date: 20090724
  Transmission Date: 20100115
  Serious: Yes (Other)
  Sender: FDA-Public Use
  Company Number: DE-ELI_LILLY_AND_COMPANY-DE200907005391

PATIENT
  Sex: Female

DRUGS (4)
  1. CYMBALTA [Suspect]
     Dosage: 30 MG, UNKNOWN
     Route: 048
  2. INVEGA [Concomitant]
     Dosage: 9 MG, UNKNOWN
     Route: 065
  3. SEROQUEL [Concomitant]
     Dosage: 200 MG, UNKNOWN
     Route: 065
  4. SOLVEX [Concomitant]
     Dosage: 4 MG, UNKNOWN
     Route: 065

REACTIONS (5)
  - CARDIOVASCULAR INSUFFICIENCY [None]
  - COMA [None]
  - HYPOTENSION [None]
  - RESPIRATORY FAILURE [None]
  - SUICIDE ATTEMPT [None]
